FAERS Safety Report 14057318 (Version 1)
Quarter: 2017Q4

REPORT INFORMATION
  Report Type: Spontaneous
  Country: US (occurrence: US)
  Receive Date: 20171006
  Receipt Date: 20171006
  Transmission Date: 20180321
  Serious: Yes (Hospitalization, Other)
  Sender: FDA-Public Use
  Company Number: US-PFIZER INC-2017419281

PATIENT
  Age: 60 Year
  Sex: Female
  Weight: 77.11 kg

DRUGS (4)
  1. ALPRAZOLAM. [Suspect]
     Active Substance: ALPRAZOLAM
     Indication: SLEEP DISORDER
     Dosage: 0.125 MG (QUARTER OF TABLET), UNK
     Dates: start: 20170925, end: 20170926
  2. ALPRAZOLAM. [Suspect]
     Active Substance: ALPRAZOLAM
     Indication: ANXIETY
     Dosage: 0.5 MG, 1X/DAY AS NEEDED
  3. ALPRAZOLAM. [Suspect]
     Active Substance: ALPRAZOLAM
     Indication: DEPRESSION
     Dosage: ONE-HALF TABLET (0.25 MG) OR QUARTER OF TABLET (0.125 MG), 1X/DAY OR EVERY 2 OR 3 DAYS AS NEEDED
  4. ASPIRIN 81 [Concomitant]
     Active Substance: ASPIRIN
     Indication: ISCHAEMIA
     Dosage: 81 MG, 1X/DAY
     Dates: start: 201709

REACTIONS (13)
  - Loss of consciousness [Unknown]
  - Panic attack [Not Recovered/Not Resolved]
  - Head discomfort [Unknown]
  - Nausea [Unknown]
  - Somnolence [Recovering/Resolving]
  - Condition aggravated [Not Recovered/Not Resolved]
  - Dissociation [Not Recovered/Not Resolved]
  - Headache [Unknown]
  - Anxiety [Not Recovered/Not Resolved]
  - Dizziness [Recovering/Resolving]
  - Paraesthesia [Unknown]
  - Nervousness [Not Recovered/Not Resolved]
  - Disturbance in attention [Not Recovered/Not Resolved]

NARRATIVE: CASE EVENT DATE: 2017
